FAERS Safety Report 19112229 (Version 1)
Quarter: 2021Q2

REPORT INFORMATION
  Report Type: Spontaneous
  Country: JP (occurrence: JP)
  Receive Date: 20210408
  Receipt Date: 20210408
  Transmission Date: 20210717
  Serious: Yes (Hospitalization)
  Sender: FDA-Public Use
  Company Number: JP-UCBSA-2021016305

PATIENT
  Sex: Male

DRUGS (5)
  1. E KEPPRA [Suspect]
     Active Substance: LEVETIRACETAM
     Indication: EPILEPSY
     Dosage: 500 MG X 3 TABLETS IN THE MORNING AND THE EVENING, RESPECTIVELY
     Route: 048
  2. E KEPPRA [Suspect]
     Active Substance: LEVETIRACETAM
     Dosage: 750 MILLIGRAM, 2X/DAY (BID)
     Route: 048
  3. VIMPAT [Suspect]
     Active Substance: LACOSAMIDE
     Indication: EPILEPSY
     Dosage: 50 MILLIGRAM, 2X/DAY (BID)
     Route: 048
  4. E KEPPRA [Suspect]
     Active Substance: LEVETIRACETAM
     Dosage: UNK, THREE TIMES DAILY
     Route: 048
  5. VIMPAT [Suspect]
     Active Substance: LACOSAMIDE
     Dosage: UNK, 3X/DAY (TID)
     Route: 048

REACTIONS (5)
  - Off label use [Unknown]
  - Epilepsy [Unknown]
  - Insomnia [Unknown]
  - Hospitalisation [Unknown]
  - Pyrexia [Unknown]
